FAERS Safety Report 4530736-3 (Version None)
Quarter: 2004Q4

REPORT INFORMATION
  Report Type: 
  Country: None (occurrence: None)
  Receive Date: 20041217
  Receipt Date: 20041209
  Transmission Date: 20050328
  Serious: Yes (Hospitalization)
  Sender: FDA-Public Use
  Company Number: 2004-02395

PATIENT
  Age: 3 Year
  Sex: Male

DRUGS (2)
  1. PAROXAT [Suspect]
     Dosage: 200MG SINGLE DOSE
     Route: 048
     Dates: start: 20041016
  2. NO CONCURRENT MEDICATION [Concomitant]

REACTIONS (2)
  - OVERDOSE [None]
  - TRANSAMINASES INCREASED [None]
